FAERS Safety Report 19441877 (Version 1)
Quarter: 2021Q2

REPORT INFORMATION
  Report Type: Spontaneous
  Country: GB (occurrence: GB)
  Receive Date: 20210621
  Receipt Date: 20210621
  Transmission Date: 20210717
  Serious: Yes (Other)
  Sender: FDA-Public Use
  Company Number: GB-TEVA-2021-GB-1923685

PATIENT
  Age: 68 Year
  Sex: Female
  Weight: 110 kg

DRUGS (3)
  1. HYDROMOL CREAM [Concomitant]
     Indication: PSORIASIS
     Dosage: AS DIRECTED
     Dates: start: 20210304, end: 20210416
  2. INDAPAMIDE. [Concomitant]
     Active Substance: INDAPAMIDE
     Dosage: 1.5 MILLIGRAM DAILY; EACH MORNING
     Dates: start: 20210601
  3. LISINOPRIL. [Suspect]
     Active Substance: LISINOPRIL
     Indication: ESSENTIAL HYPERTENSION
     Dosage: 10 MILLIGRAM DAILY;
     Route: 065
     Dates: start: 20210510, end: 20210601

REACTIONS (3)
  - Swelling face [Recovered/Resolved]
  - Pain in extremity [Recovered/Resolved]
  - Peripheral swelling [Recovered/Resolved]

NARRATIVE: CASE EVENT DATE: 20210601
